FAERS Safety Report 16913359 (Version 1)
Quarter: 2019Q4

REPORT INFORMATION
  Report Type: Spontaneous
  Country: US (occurrence: US)
  Receive Date: 20191011
  Receipt Date: 20191011
  Transmission Date: 20200122
  Serious: Yes (Disabling)
  Sender: FDA-Public Use
  Company Number: None

PATIENT
  Age: 73 Year
  Sex: Male
  Weight: 87.75 kg

DRUGS (1)
  1. CIPROFLOXACIN. [Suspect]
     Active Substance: CIPROFLOXACIN
     Indication: PROSTATITIS
     Dosage: ?          QUANTITY:84 TABLET(S);?
     Route: 048
     Dates: start: 20190925, end: 20191004

REACTIONS (3)
  - Tendon pain [None]
  - Rash [None]
  - Anal pruritus [None]

NARRATIVE: CASE EVENT DATE: 20191004
